FAERS Safety Report 25467180 (Version 1)
Quarter: 2025Q2

REPORT INFORMATION
  Report Type: Spontaneous
  Country: US (occurrence: None)
  Receive Date: 20250621
  Receipt Date: 20250621
  Transmission Date: 20250717
  Serious: No
  Sender: FDA-CTU
  Company Number: None

PATIENT
  Sex: Female

DRUGS (1)
  1. RINVOQ [Suspect]
     Active Substance: UPADACITINIB
     Indication: Colitis
     Dosage: FREQUENCY : DAILY;?
     Route: 002
     Dates: start: 20250307

REACTIONS (4)
  - Eye irritation [None]
  - Myalgia [None]
  - Fatigue [None]
  - Dry eye [None]
